FAERS Safety Report 8585418-8 (Version None)
Quarter: 2012Q3

REPORT INFORMATION
  Report Type: 
  Country: None (occurrence: None)
  Receive Date: 20120810
  Receipt Date: 20120516
  Transmission Date: 20120928
  Serious: No
  Sender: FDA-Public Use
  Company Number: US-PFIZER INC-2012193481

PATIENT
  Sex: Female

DRUGS (1)
  1. LATANOPROST [Suspect]
     Indication: GLAUCOMA
     Dosage: UNK

REACTIONS (1)
  - EYE COLOUR CHANGE [None]
